FAERS Safety Report 4928629-2 (Version None)
Quarter: 2006Q1

REPORT INFORMATION
  Report Type: 
  Country: None (occurrence: None)
  Receive Date: 20060227
  Receipt Date: 20060227
  Transmission Date: 20060701
  Serious: No
  Sender: FDA-Public Use
  Company Number: None

PATIENT
  Age: 4 Year
  Sex: Male

DRUGS (1)
  1. SELENIUM SULFIDE [Suspect]
     Indication: TINEA INFECTION
     Dates: start: 20060123, end: 20060125

REACTIONS (1)
  - HAIR COLOUR CHANGES [None]
